FAERS Safety Report 8032651-X (Version None)
Quarter: 2012Q1

REPORT INFORMATION
  Report Type: 
  Country: None (occurrence: None)
  Receive Date: 20120110
  Receipt Date: 20110419
  Transmission Date: 20120608
  Serious: No
  Sender: FDA-Public Use
  Company Number: US-COVIDIEN/TYCO HEALTHCARE/MALLINCKRODT-T201100818

PATIENT
  Sex: Male
  Weight: 81.179 kg

DRUGS (6)
  1. UROXATRAL [Concomitant]
     Dosage: 10 MG, UNK
  2. OPTIRAY 160 [Suspect]
     Indication: COMPUTERISED TOMOGRAM
     Dosage: 125 ML, SINGLE
     Route: 042
     Dates: start: 20110419, end: 20110419
  3. BEELITH [Concomitant]
     Dosage: 362-20 MG QD
  4. FERROUS SULFATE TAB [Concomitant]
     Dosage: 325 MG, TID
  5. POTASSIUM CHLORIDE [Concomitant]
     Dosage: 20 MEQ, UNK
  6. PROSTATE HEALTH FORMULA VITAMIN [Concomitant]
     Dosage: 15-2-160 MG /  2 PER DAY

REACTIONS (4)
  - FLUSHING [None]
  - RASH [None]
  - EYE IRRITATION [None]
  - URTICARIA [None]
